FAERS Safety Report 16965788 (Version 1)
Quarter: 2019Q4

REPORT INFORMATION
  Report Type: Spontaneous
  Country: US (occurrence: US)
  Receive Date: 20190910
  Receipt Date: 20190910
  Transmission Date: 20200122
  Serious: No
  Sender: FDA-Public Use
  Company Number: None

PATIENT
  Age: 39 Year
  Sex: Female

DRUGS (1)
  1. SPRYCEL [Suspect]
     Active Substance: DASATINIB
     Indication: CHRONIC MYELOID LEUKAEMIA
     Route: 048
     Dates: start: 201908

REACTIONS (6)
  - Dyspnoea [None]
  - Pulmonary oedema [None]
  - Therapy cessation [None]
  - Cough [None]
  - Insurance issue [None]
  - Ovarian cyst [None]

NARRATIVE: CASE EVENT DATE: 20190910
